FAERS Safety Report 5727321-4 (Version None)
Quarter: 2008Q2

REPORT INFORMATION
  Report Type: 
  Country: None (occurrence: None)
  Receive Date: 20080430
  Receipt Date: 20080415
  Transmission Date: 20081010
  Serious: Yes (Life-Threatening)
  Sender: FDA-Public Use
  Company Number: 8031954

PATIENT
  Age: 76 Year
  Sex: Male

DRUGS (2)
  1. KEPPRA [Suspect]
     Indication: EPILEPSY
     Dosage: 2000 MG PO
     Route: 048
     Dates: start: 20060801, end: 20080218
  2. DEPAKOTE [Concomitant]

REACTIONS (1)
  - BONE MARROW FAILURE [None]
